FAERS Safety Report 6772997-6 (Version None)
Quarter: 2010Q2

REPORT INFORMATION
  Report Type: 
  Country: None (occurrence: None)
  Receive Date: 20100616
  Receipt Date: 20100608
  Transmission Date: 20101027
  Serious: Yes (Death)
  Sender: FDA-Public Use
  Company Number: GB-PFIZER INC-2010071458

PATIENT
  Sex: Female

DRUGS (1)
  1. LIPITOR [Suspect]
     Dosage: UNK

REACTIONS (9)
  - ABDOMINAL PAIN UPPER [None]
  - CONTUSION [None]
  - DEATH [None]
  - DECREASED APPETITE [None]
  - HAEMORRHAGE [None]
  - JOINT SWELLING [None]
  - MALAISE [None]
  - PARAESTHESIA [None]
  - RASH PRURITIC [None]
